FAERS Safety Report 5945910-9 (Version None)
Quarter: 2008Q4

REPORT INFORMATION
  Report Type: 
  Country: None (occurrence: None)
  Receive Date: 20081105
  Receipt Date: 20081027
  Transmission Date: 20090506
  Serious: Yes (Hospitalization)
  Sender: FDA-Public Use
  Company Number: B0544169A

PATIENT
  Age: 43 Year
  Sex: Male

DRUGS (8)
  1. AMOXICILLIN TRIHYDRATE [Suspect]
     Indication: TRACHEITIS
  2. AMOXICILLIN AND CLAVULANATE POTASSIUM [Suspect]
  3. JOSAMYCIN [Suspect]
  4. ACETAMINOPHEN [Concomitant]
  5. BISOPROLOL FUMARATE [Concomitant]
  6. ASPIRIN [Concomitant]
  7. ALLOPURINOL [Concomitant]
  8. FOLIC ACID [Concomitant]

REACTIONS (5)
  - FLATULENCE [None]
  - PANCREATIC NECROSIS [None]
  - PANCREATITIS ACUTE [None]
  - SELF-MEDICATION [None]
  - WEIGHT DECREASED [None]
